FAERS Safety Report 7969477-9 (Version None)
Quarter: 2011Q4

REPORT INFORMATION
  Report Type: 
  Country: None (occurrence: None)
  Receive Date: 20111212
  Receipt Date: 20111205
  Transmission Date: 20120403
  Serious: Yes (Death, Hospitalization)
  Sender: FDA-Public Use
  Company Number: US-BIOGENIDEC-2011BI044173

PATIENT
  Sex: Male

DRUGS (2)
  1. AVONEX [Suspect]
     Indication: MULTIPLE SCLEROSIS
     Route: 030
  2. AVONEX [Suspect]
     Route: 030
     Dates: start: 19990701, end: 20031201

REACTIONS (3)
  - MULTIPLE SCLEROSIS [None]
  - DEATH [None]
  - SKIN LESION [None]
